FAERS Safety Report 8447289-X (Version None)
Quarter: 2012Q2

REPORT INFORMATION
  Report Type: 
  Country: None (occurrence: None)
  Receive Date: 20120619
  Receipt Date: 20120612
  Transmission Date: 20120825
  Serious: Yes (Other)
  Sender: FDA-Public Use
  Company Number: PHHY2012BR023118

PATIENT
  Sex: Female

DRUGS (14)
  1. IMATINIB MESYLATE [Suspect]
     Indication: POLYCYTHAEMIA VERA
     Dosage: 400 MG, QD
     Route: 048
     Dates: start: 20080101
  2. ATENOLOL AND CHLORTHALIDONE [Concomitant]
     Dosage: 50 MG, UNK
  3. PSYCHIATRIC THERAPY [Concomitant]
  4. CLONAZEPAM [Concomitant]
     Dosage: 2 MG, UNK
  5. LEVOTHYROXINE SODIUM [Concomitant]
     Dosage: 50 MG, UNK
  6. PINAVERIUM BROMIDE [Concomitant]
     Dosage: 100 MG, UNK
  7. ANTIINFLAMMATORY/ANTIRHEUMATIC NON-STEROIDS [Concomitant]
  8. AMARYL [Concomitant]
     Dosage: 2 MG, QD
  9. DEPAKOTE [Concomitant]
     Dosage: 250 MG, UNK
  10. DIGESAN [Concomitant]
     Dosage: 10 MG, UNK
  11. ASPIRIN [Concomitant]
  12. NPH INSULIN [Concomitant]
     Dosage: 15 U, BID
     Route: 058
  13. DIOVAN [Concomitant]
     Dosage: 160 MG, UNK
  14. PANTOPRAZOLE [Concomitant]
     Dosage: 20 MG, UNK

REACTIONS (6)
  - VOMITING [None]
  - ABDOMINAL PAIN [None]
  - DIARRHOEA [None]
  - GASTROINTESTINAL DISORDER [None]
  - NAUSEA [None]
  - DIARRHOEA HAEMORRHAGIC [None]
